FAERS Safety Report 12556540 (Version 1)
Quarter: 2016Q3

REPORT INFORMATION
  Report Type: Spontaneous
  Country: CN (occurrence: CN)
  Receive Date: 20160714
  Receipt Date: 20160714
  Transmission Date: 20161109
  Serious: Yes (Life-Threatening)
  Sender: FDA-Public Use
  Company Number: CN-BAYER-2016-131546

PATIENT
  Age: 46 Year
  Sex: Female
  Weight: 48 kg

DRUGS (2)
  1. AVELOX [Suspect]
     Active Substance: MOXIFLOXACIN HYDROCHLORIDE
     Indication: ANTIBIOTIC THERAPY
     Dosage: 400 MG, QD
     Route: 041
     Dates: start: 20151121, end: 20151121
  2. BETALOC [Concomitant]
     Active Substance: METOPROLOL TARTRATE
     Indication: HYPERTENSION
     Dosage: 25 MG, QD
     Route: 048

REACTIONS (1)
  - Supraventricular tachycardia [Recovering/Resolving]

NARRATIVE: CASE EVENT DATE: 20151121
